FAERS Safety Report 24255847 (Version 11)
Quarter: 2025Q3

REPORT INFORMATION
  Report Type: Report from Study
  Country: US (occurrence: US)
  Receive Date: 20240827
  Receipt Date: 20250912
  Transmission Date: 20251021
  Serious: Yes (Hospitalization, Disabling, Other)
  Sender: SUNOVION
  Company Number: US-SMPA-2024SPA000512

PATIENT
  Age: 49 Year
  Sex: Male

DRUGS (3)
  1. ORGOVYX [Suspect]
     Active Substance: RELUGOLIX
     Indication: Prostate cancer
     Route: 048
     Dates: start: 20240701, end: 20240701
  2. ORGOVYX [Suspect]
     Active Substance: RELUGOLIX
     Dosage: 120 MG, QD
     Route: 048
     Dates: start: 20240702
  3. TRAZODONE [Concomitant]
     Active Substance: TRAZODONE HYDROCHLORIDE
     Indication: Insomnia

REACTIONS (20)
  - Hernia [Unknown]
  - Dengue fever [Unknown]
  - Limb injury [Recovering/Resolving]
  - Spinal operation [Unknown]
  - Ankle fracture [Unknown]
  - Meniscus injury [Unknown]
  - Synovial cyst [Unknown]
  - Back injury [Unknown]
  - Arthropathy [Unknown]
  - Nerve injury [Unknown]
  - Muscular weakness [Unknown]
  - Erectile dysfunction [Unknown]
  - Hypoaesthesia [Unknown]
  - Malaise [Unknown]
  - Arthritis [Unknown]
  - Arthralgia [Unknown]
  - Insomnia [Unknown]
  - Back pain [Unknown]
  - Blood cholesterol increased [Unknown]
  - Product dose omission issue [Recovered/Resolved]
